FAERS Safety Report 9322177 (Version 1)
Quarter: 2013Q2

REPORT INFORMATION
  Report Type: Spontaneous
  Country: JP (occurrence: None)
  Receive Date: 20130529
  Receipt Date: 20130529
  Transmission Date: 20140414
  Serious: Yes (Hospitalization)
  Sender: FDA-Public Use
  Company Number: FK201301719

PATIENT
  Age: 57 Year
  Sex: Female

DRUGS (3)
  1. PACLITAXEL (MANUFACTURER UNKNOWN) (PACLITAXEL) (PACLITAXEL) [Suspect]
     Indication: LUNG ADENOCARCINOMA STAGE IV
  2. CARBOPLATIN (MANUFACTURER UNKNOWN) (CARBOPLATIN) (CARBOPLATIN) [Suspect]
     Indication: LUNG ADENOCARCINOMA STAGE IV
     Dosage: AUC=5
  3. BEVACIZUMAB [Suspect]
     Indication: LUNG ADENOCARCINOMA STAGE IV

REACTIONS (8)
  - Neutropenia [None]
  - Proteinuria [None]
  - Back pain [None]
  - Pyrexia [None]
  - Blood lactate dehydrogenase increased [None]
  - Blood creatinine increased [None]
  - Aspartate aminotransferase increased [None]
  - Alanine aminotransferase increased [None]
